FAERS Safety Report 18295756 (Version 1)
Quarter: 2020Q3

REPORT INFORMATION
  Report Type: Spontaneous
  Country: US (occurrence: US)
  Receive Date: 20200922
  Receipt Date: 20200922
  Transmission Date: 20201103
  Serious: No
  Sender: FDA-Public Use
  Company Number: US-AMARIN PHARMA, INC.-2020AMR000387

PATIENT
  Age: 73 Year
  Sex: Female
  Weight: 51.3 kg

DRUGS (4)
  1. TYLENOL [Concomitant]
     Active Substance: ACETAMINOPHEN
     Indication: PRODUCT USED FOR UNKNOWN INDICATION
  2. VASCEPA [Suspect]
     Active Substance: ICOSAPENT ETHYL
     Dosage: 4?6 CAPSULES
     Route: 048
  3. BABY ASPIRIN [Concomitant]
     Active Substance: ASPIRIN
     Indication: PRODUCT USED FOR UNKNOWN INDICATION
  4. VASCEPA [Suspect]
     Active Substance: ICOSAPENT ETHYL
     Indication: CARDIAC DISORDER
     Dosage: 1?2 CAPSULES
     Route: 048
     Dates: end: 2020

REACTIONS (3)
  - Arthralgia [Unknown]
  - Prescribed underdose [Unknown]
  - Prescribed overdose [Unknown]
